FAERS Safety Report 7894373-5 (Version None)
Quarter: 2011Q4

REPORT INFORMATION
  Report Type: 
  Country: None (occurrence: None)
  Receive Date: 20111104
  Receipt Date: 20111024
  Transmission Date: 20120403
  Serious: Yes (Other)
  Sender: FDA-Public Use
  Company Number: JP-ROCHE-1006979

PATIENT
  Age: 64 Year
  Sex: Female

DRUGS (4)
  1. PREDNISOLONE [Concomitant]
  2. METHOTREXATE [Concomitant]
  3. METHYLPREDNISOLONE [Concomitant]
  4. TOCILIZUMAB [Suspect]
     Indication: RHEUMATOID ARTHRITIS
     Dates: start: 20100601

REACTIONS (1)
  - ORGANISING PNEUMONIA [None]
